FAERS Safety Report 23076435 (Version 1)
Quarter: 2023Q4

REPORT INFORMATION
  Report Type: Spontaneous
  Country: US (occurrence: US)
  Receive Date: 20231017
  Receipt Date: 20231017
  Transmission Date: 20240109
  Serious: No
  Sender: FDA-Public Use
  Company Number: US-VIIV HEALTHCARE LIMITED-US2023128357

PATIENT
  Sex: Female

DRUGS (1)
  1. SELZENTRY [Suspect]
     Active Substance: MARAVIROC
     Indication: HIV infection
     Dosage: 5 DF THREE TABLETS BY MOUTH IN THE MORNING AND TWO TABLETS BY MOUTH IN THE EVENING
     Route: 048

REACTIONS (2)
  - Ill-defined disorder [Unknown]
  - Incorrect dose administered [Unknown]
